FAERS Safety Report 10194176 (Version 1)
Quarter: 2014Q2

REPORT INFORMATION
  Report Type: Spontaneous
  Country: US (occurrence: US)
  Receive Date: 20140524
  Receipt Date: 20140524
  Transmission Date: 20141212
  Serious: No
  Sender: FDA-Public Use
  Company Number: US-SANOFI-AVENTIS-2013SA068879

PATIENT
  Age: 81 Year
  Sex: Male

DRUGS (3)
  1. LANTUS [Suspect]
     Indication: TYPE 2 DIABETES MELLITUS
     Dosage: PRODUCT START DATE: 2 YEARS AGO?DOSE: 45 UNITS AT AM + 35 UNITS AT PM
     Route: 065
  2. LANTUS SOLOSTAR [Suspect]
     Dosage: THERAPY START DATE - APPROXIMATELY 8 MONTHS AGO?DOSE: 45UNITS/35 UNITS?FREQUENCY BID
     Route: 065
  3. SOLOSTAR [Concomitant]
     Dosage: THERAPY START DATE - APPROXIMATELY 3 MONTHS AGO?THERAPY END DATE - LESS THAN 1 WEEK AGO

REACTIONS (6)
  - Visual impairment [Unknown]
  - Arthritis [Unknown]
  - Blood glucose increased [Unknown]
  - Blood glucose decreased [Unknown]
  - Blood glucose fluctuation [Unknown]
  - Drug dose omission [Unknown]
